FAERS Safety Report 9905653 (Version 1)
Quarter: 2014Q1

REPORT INFORMATION
  Report Type: Spontaneous
  Country: AU (occurrence: None)
  Receive Date: 20140211
  Receipt Date: 20140211
  Transmission Date: 20141002
  Serious: Yes (Hospitalization)
  Sender: FDA-Public Use
  Company Number: 2014000030

PATIENT
  Age: 60 Year
  Sex: Male
  Weight: 81 kg

DRUGS (20)
  1. ACEON (PERINDOPRIL ERBUMINE) TABLET [Suspect]
     Indication: MYOCARDIAL ISCHAEMIA
     Route: 048
     Dates: start: 20130727, end: 20130801
  2. FLUCLOXACILLIN SODIUM [Suspect]
     Route: 048
     Dates: start: 20130726, end: 20130805
  3. ACETYLSALICYLIC ACID (ACETYLSALICYLIC ACID) [Concomitant]
  4. ATORVASTATIN (ATORVASTATIN) [Concomitant]
  5. CEFTRIAXONE (CEFTRIAXONE) [Concomitant]
  6. CEFAZOLIN SODIUM (CEFAZOLIN SODIUM) [Concomitant]
  7. COLECALCIFEROL (COLECALCIFEROL) [Concomitant]
  8. ENOXAPARIN (ENOXAPARIN) [Concomitant]
  9. FERROUS SULFATE (FERROUS SULFATE) [Concomitant]
  10. GILCLAZIDE (GLICLAZIDE) [Concomitant]
  11. HEPARIN SODIUM (HEPARIN SODIUM) [Concomitant]
  12. INSULIN GLARGINE (INSULIN GLARGINE) [Concomitant]
  13. LACTULOSE (LACTULOSE) [Concomitant]
  14. LINCOMYCIN (LINCOMYCIN) [Concomitant]
  15. METFORMIN (METFORMIN) [Concomitant]
  16. METRONIDAZOLE (METRONIDAZOLE) [Concomitant]
  17. PANTOPRAZOLE (PANTOPRAZOLE) [Concomitant]
  18. PIPERACILLIN SODIUM W/TAZOBACTAM SODIUM (PIPERACILLIN SODIUM W/TAZOBACTAM SODIUM) [Concomitant]
  19. TRAMADOL (TRAMADOL) [Concomitant]
  20. VANCOMYCIN (VANCOMYCIN) [Concomitant]

REACTIONS (2)
  - Tubulointerstitial nephritis [None]
  - Renal failure acute [None]
